FAERS Safety Report 8840032 (Version 2)
Quarter: 2012Q4

REPORT INFORMATION
  Report Type: Spontaneous
  Country: US (occurrence: None)
  Receive Date: 20121010
  Receipt Date: 20121024
  Transmission Date: 20130627
  Serious: Yes (Hospitalization)
  Sender: FDA-Public Use
  Company Number: JPI-P-025449

PATIENT
  Age: 54 Year
  Sex: Female
  Weight: 93.67 kg

DRUGS (14)
  1. XYREM (500 MILLIGRAM/ MILLILITERS, SOLUTION) (SODIUM OXYBATE) [Suspect]
     Indication: CATAPLEXY
     Dosage: 6 GM (3 GM, 2 IN 1 D), Oral
     Route: 048
     Dates: start: 20030410
  2. XYREM (500 MILLIGRAM/ MILLILITERS, SOLUTION) (SODIUM OXYBATE) [Suspect]
     Indication: CATAPLEXY
     Dosage: 4.5 gm, 2 in 1 D), Oral
     Route: 048
  3. XYREM (500 MILLIGRAM/ MILLILITERS, SOLUTION) (SODIUM OXYBATE) [Suspect]
     Indication: CATAPLEXY
     Dosage: 6 gm (3 gm, 2 in 1 D), Oral
     Route: 048
  4. XYREM (500 MILLIGRAM/ MILLILITERS, SOLUTION) (SODIUM OXYBATE) [Suspect]
     Indication: CATAPLEXY
     Dosage: (4.5 gm, 2 in 1 D)
     Route: 048
  5. CORTICOSTEROID [Suspect]
     Indication: BACK PAIN
     Dosage: ( , TOTAL OF 5 INJECTIONS) ,Epidural
     Route: 008
     Dates: start: 2008, end: 2010
  6. CLONIDINE HYDROCHLORIDE [Concomitant]
  7. LOSARTAN [Concomitant]
  8. AMLODIPINE BESYLATE [Concomitant]
  9. WARFARIN SODIUM [Concomitant]
  10. CARBIDOPA W/LEVODOPA [Concomitant]
  11. IMIPRAMINE [Concomitant]
  12. FLINTSTONES WITH IRON [Concomitant]
  13. CALCIUM CITRATE CHEWABLE WITH VITAMIN D [Concomitant]
  14. VITAMIN B [Concomitant]

REACTIONS (14)
  - Postoperative wound infection [None]
  - Weight increased [None]
  - Sedation [None]
  - Contusion [None]
  - Back pain [None]
  - Somnolence [None]
  - Blood pressure increased [None]
  - Cough [None]
  - Cerebrovascular accident [None]
  - Gout [None]
  - Vertigo [None]
  - Cerebrovascular accident [None]
  - Oedema peripheral [None]
  - Abscess [None]
